FAERS Safety Report 7649898-4 (Version None)
Quarter: 2011Q3

REPORT INFORMATION
  Report Type: 
  Country: None (occurrence: None)
  Receive Date: 20110802
  Receipt Date: 20110720
  Transmission Date: 20111222
  Serious: Yes (Other)
  Sender: FDA-Public Use
  Company Number: JP-ELI_LILLY_AND_COMPANY-JP201107005888

PATIENT
  Age: 45 Year
  Sex: Male

DRUGS (2)
  1. GEMZAR [Suspect]
     Indication: INTRADUCTAL PAPILLARY MUCINOUS NEOPLASM
     Dosage: UNK
     Route: 042
     Dates: end: 20101101
  2. TS 1 [Concomitant]
     Indication: INTRADUCTAL PAPILLARY MUCINOUS NEOPLASM

REACTIONS (3)
  - MALAISE [None]
  - NEUTROPHIL COUNT DECREASED [None]
  - THROMBOTIC MICROANGIOPATHY [None]
